FAERS Safety Report 11147094 (Version 5)
Quarter: 2019Q4

REPORT INFORMATION
  Report Type: Report from Study
  Country: US (occurrence: US)
  Receive Date: 20150528
  Receipt Date: 20191226
  Transmission Date: 20200122
  Serious: Yes (Hospitalization, Other)
  Sender: FDA-Public Use
  Company Number: US-SA-2014SA114793

PATIENT
  Age: 62 Year
  Sex: Female

DRUGS (6)
  1. TERIFLUNOMIDE. [Suspect]
     Active Substance: TERIFLUNOMIDE
     Dosage: 14 MG,QD
     Route: 048
     Dates: start: 2015
  2. INTERFERON BETA-1B [Concomitant]
     Active Substance: INTERFERON BETA-1B
     Indication: MULTIPLE SCLEROSIS
     Dosage: UNK
     Dates: start: 19980101, end: 20140518
  3. BACLOFEN. [Concomitant]
     Active Substance: BACLOFEN
     Dosage: UNK
  4. TERIFLUNOMIDE. [Suspect]
     Active Substance: TERIFLUNOMIDE
     Indication: MULTIPLE SCLEROSIS
     Dosage: 14 MG,QD
     Route: 048
     Dates: start: 20140521
  5. TERIFLUNOMIDE. [Suspect]
     Active Substance: TERIFLUNOMIDE
     Dosage: 14 MG,QD
     Route: 048
     Dates: start: 20140521
  6. TERIFLUNOMIDE. [Suspect]
     Active Substance: TERIFLUNOMIDE
     Dosage: 14 MG,QD
     Route: 048
     Dates: start: 2015

REACTIONS (22)
  - Hospitalisation [Unknown]
  - Alopecia [Recovering/Resolving]
  - Stress [Unknown]
  - Muscle strain [Unknown]
  - Joint swelling [Unknown]
  - Influenza [Recovered/Resolved]
  - Skin neoplasm excision [Not Recovered/Not Resolved]
  - Wrist fracture [Recovering/Resolving]
  - Cartilage injury [Unknown]
  - Multiple sclerosis relapse [Recovered/Resolved]
  - Knee operation [Unknown]
  - Blood pressure increased [Recovering/Resolving]
  - Eye contusion [Not Recovered/Not Resolved]
  - Fatigue [Not Recovered/Not Resolved]
  - Fall [Unknown]
  - Contusion [Unknown]
  - Rib fracture [Not Recovered/Not Resolved]
  - Traumatic tooth displacement [Not Recovered/Not Resolved]
  - Tremor [Recovering/Resolving]
  - Urinary tract infection [Unknown]
  - Multiple sclerosis relapse [Recovering/Resolving]
  - Tendon disorder [Not Recovered/Not Resolved]

NARRATIVE: CASE EVENT DATE: 2014
